FAERS Safety Report 21943487 (Version 1)
Quarter: 2023Q1

REPORT INFORMATION
  Report Type: Other
  Country: PA (occurrence: PA)
  Receive Date: 20230202
  Receipt Date: 20230202
  Transmission Date: 20230418
  Serious: Yes (Death, Hospitalization)
  Sender: FDA-Public Use
  Company Number: PA-TOLMAR, INC.-23PA038461

PATIENT
  Age: 85 Year
  Sex: Male

DRUGS (2)
  1. ELIGARD [Suspect]
     Active Substance: LEUPROLIDE ACETATE
     Indication: Prostate cancer
     Dosage: 45 MILLIGRAM, Q 6 MONTH
     Route: 058
     Dates: start: 20201022
  2. XTANDI [Suspect]
     Active Substance: ENZALUTAMIDE
     Indication: Prostate cancer
     Dosage: 4 DOSAGE FORM, QD
     Route: 048
     Dates: start: 20201022

REACTIONS (6)
  - General physical health deterioration [Fatal]
  - Pneumonia [Unknown]
  - Sepsis [Unknown]
  - Infection [Unknown]
  - Urinary tract infection [Unknown]
  - Pyrexia [Unknown]

NARRATIVE: CASE EVENT DATE: 20220516
